FAERS Safety Report 18777052 (Version 1)
Quarter: 2021Q1

REPORT INFORMATION
  Report Type: Report from Study
  Country: None (occurrence: US)
  Receive Date: 20210123
  Receipt Date: 20210123
  Transmission Date: 20210419
  Serious: Yes (Hospitalization)
  Sender: FDA-Public Use
  Company Number: US-ABBVIE-21K-163-3740038-00

PATIENT
  Age: 26 Year
  Sex: Female

DRUGS (1)
  1. HUMIRA [Suspect]
     Active Substance: ADALIMUMAB
     Indication: COLITIS ULCERATIVE
     Route: 058
     Dates: start: 201701, end: 20210114

REACTIONS (6)
  - Tonsillitis [Unknown]
  - Hiatus hernia [Unknown]
  - Post procedural fever [Unknown]
  - Pneumonia [Unknown]
  - Post procedural diarrhoea [Unknown]
  - Procedural pain [Unknown]

NARRATIVE: CASE EVENT DATE: 202101
